FAERS Safety Report 22183919 (Version 1)
Quarter: 2023Q2

REPORT INFORMATION
  Report Type: Spontaneous
  Country: DE (occurrence: DE)
  Receive Date: 20230406
  Receipt Date: 20230406
  Transmission Date: 20230722
  Serious: Yes (Hospitalization)
  Sender: FDA-Public Use
  Company Number: DE-ADRED-06042-01

PATIENT
  Age: 77 Year
  Sex: Female

DRUGS (3)
  1. BENDAMUSTINE [Suspect]
     Active Substance: BENDAMUSTINE
     Indication: Product used for unknown indication
     Dosage: ZULETZT 0820202
  2. ATORVASTATIN [Concomitant]
     Active Substance: ATORVASTATIN
     Indication: Product used for unknown indication
  3. CHOLECALCIFEROL [Concomitant]
     Active Substance: CHOLECALCIFEROL
     Indication: Product used for unknown indication
     Dosage: 1X IN DER WOCHE

REACTIONS (7)
  - Abdominal pain lower [Unknown]
  - Myalgia [Unknown]
  - Pain in extremity [Unknown]
  - Night sweats [Unknown]
  - Pyrexia [Unknown]
  - Paraesthesia [Unknown]
  - Infection [Unknown]
